FAERS Safety Report 5701711-8 (Version None)
Quarter: 2008Q2

REPORT INFORMATION
  Report Type: 
  Country: None (occurrence: None)
  Receive Date: 20080411
  Receipt Date: 20080331
  Transmission Date: 20081010
  Serious: Yes (Death, Hospitalization, Other)
  Sender: FDA-Public Use
  Company Number: IT-WYE-H02668708

PATIENT
  Sex: Female

DRUGS (9)
  1. CORDARONE [Suspect]
     Indication: ATRIAL FIBRILLATION
     Route: 042
     Dates: start: 20080204, end: 20080205
  2. LASIX [Concomitant]
     Dosage: 250 MG CONT
     Route: 042
  3. EPREX [Concomitant]
  4. REVIVAN [Concomitant]
     Dosage: 4 MCG/KG/MIN
     Route: 042
     Dates: end: 20080205
  5. REVIVAN [Concomitant]
     Dosage: UNSPECIFIED
     Route: 042
     Dates: start: 20080205
  6. GLAZIDIM [Concomitant]
  7. INSULIN [Concomitant]
     Indication: BLOOD GLUCOSE INCREASED
     Dosage: UNSPECIFIED
     Route: 058
  8. HEPARIN SODIUM [Concomitant]
     Indication: DIALYSIS
     Dosage: DOSE UNKNOWN
     Route: 042
  9. TICLOPIDINE HYDROCHLORIDE [Concomitant]
     Route: 048

REACTIONS (4)
  - CARDIAC ARREST [None]
  - ELECTROCARDIOGRAM QT PROLONGED [None]
  - HEPATITIS ACUTE [None]
  - NODAL ARRHYTHMIA [None]
